FAERS Safety Report 8273803-3 (Version None)
Quarter: 2012Q2

REPORT INFORMATION
  Report Type: 
  Country: None (occurrence: None)
  Receive Date: 20120409
  Receipt Date: 20120404
  Transmission Date: 20120825
  Serious: Yes (Hospitalization)
  Sender: FDA-Public Use
  Company Number: SP04080

PATIENT
  Age: 45 Year
  Sex: Female
  Weight: 73 kg

DRUGS (7)
  1. AZATHIOPRINE [Concomitant]
  2. ENOXAPARIN [Suspect]
     Indication: HEPATIC ENCEPHALOPATHY PROPHYLAXIS
     Dosage: 1200 MG (400 MG, 1 IN 8 HR)
     Dates: start: 20100201, end: 20100201
  3. XIFAXAN [Suspect]
     Indication: HEPATIC ENCEPHALOPATHY PROPHYLAXIS
     Dosage: 1200 MG (400 MG, 1 IN 8 HR)
     Dates: start: 20100201, end: 20100201
  4. PANTOPRAZOLE [Concomitant]
  5. HYDROCORTISONE [Concomitant]
  6. BUDESONIDE [Concomitant]
  7. HEPARIN [Concomitant]

REACTIONS (7)
  - DRUG CLEARANCE DECREASED [None]
  - HEPARIN-INDUCED THROMBOCYTOPENIA [None]
  - HYPOMETABOLISM [None]
  - NEUTROPENIA [None]
  - ENTEROCOLITIS HAEMORRHAGIC [None]
  - URINARY TRACT INFECTION [None]
  - WHITE BLOOD CELL COUNT DECREASED [None]
